FAERS Safety Report 4945881-8 (Version None)
Quarter: 2006Q1

REPORT INFORMATION
  Report Type: 
  Country: None (occurrence: None)
  Receive Date: 20060117
  Receipt Date: 20041217
  Transmission Date: 20060701
  Serious: Yes (Hospitalization)
  Sender: FDA-Public Use
  Company Number: A03200404291

PATIENT
  Age: 83 Year
  Sex: Female
  Weight: 63.5036 kg

DRUGS (3)
  1. PLAVIX - CLOPIDOGREL SULFATE - TALET - 75 MG [Suspect]
     Indication: TRANSIENT ISCHAEMIC ATTACK
     Dosage: 75 MG QD - ORAL
     Route: 048
     Dates: end: 20041101
  2. ATENOLOL [Concomitant]
  3. DIPYRIDAMOLE + ACETYLSALICYLIC ACID [Concomitant]

REACTIONS (4)
  - FATIGUE [None]
  - RECTAL HAEMORRHAGE [None]
  - VISION BLURRED [None]
  - WRONG DRUG ADMINISTERED [None]
